FAERS Safety Report 6733440-6 (Version None)
Quarter: 2010Q2

REPORT INFORMATION
  Report Type: 
  Country: None (occurrence: None)
  Receive Date: 20100520
  Receipt Date: 20100513
  Transmission Date: 20101027
  Serious: Yes (Hospitalization)
  Sender: FDA-Public Use
  Company Number: US-KINGPHARMUSA00001-K201000590

PATIENT
  Age: 53 Year
  Sex: Female
  Weight: 40.363 kg

DRUGS (7)
  1. LEVOXYL [Suspect]
     Indication: HYPOTHYROIDISM
     Dosage: 175 MCG, QD
     Dates: start: 19920101, end: 20090101
  2. LEVOXYL [Suspect]
     Dosage: 225 MCG, QD
     Dates: start: 20090101, end: 20100511
  3. LEVOXYL [Suspect]
     Dosage: 175 MCG, QD
     Dates: start: 20100515
  4. PREDNISONE TAB [Concomitant]
  5. NEURONTIN [Concomitant]
  6. ATRIPLA [Concomitant]
     Indication: HIV ANTIBODY
  7. FLUDROCORTISONE [Concomitant]
     Indication: ADRENAL DISORDER

REACTIONS (5)
  - DIARRHOEA [None]
  - GASTRIC HYPERMOTILITY [None]
  - HOSPITALISATION [None]
  - THYROXINE DECREASED [None]
  - WEIGHT DECREASED [None]
